FAERS Safety Report 12146632 (Version 1)
Quarter: 2016Q1

REPORT INFORMATION
  Report Type: Spontaneous
  Country: US (occurrence: US)
  Receive Date: 20160304
  Receipt Date: 20160304
  Transmission Date: 20160526
  Serious: Yes (Hospitalization, Other)
  Sender: FDA-Public Use
  Company Number: US-INDIVIOR-INDV-085649-2015

PATIENT
  Sex: Male
  Weight: 2.73 kg

DRUGS (7)
  1. PRENATAL VITAMINS                  /02014401/ [Suspect]
     Active Substance: VITAMINS
     Indication: PREGNANCY
     Dosage: UNK
     Route: 064
     Dates: start: 20150304, end: 20151002
  2. FERROUS SULFATE [Suspect]
     Active Substance: FERROUS SULFATE\FERROUS SULFATE, DRIED
     Indication: ANAEMIA
     Dosage: UNK
     Route: 064
     Dates: start: 20150304, end: 20151002
  3. ALBUTEROL                          /00139501/ [Suspect]
     Active Substance: ALBUTEROL
     Indication: ASTHMA
     Dosage: UNK
     Route: 064
     Dates: start: 20150304, end: 20151002
  4. SUBUTEX [Suspect]
     Active Substance: BUPRENORPHINE HYDROCHLORIDE
     Indication: DRUG DEPENDENCE
     Dosage: 8 MG 3 TIMES DAILY
     Route: 064
     Dates: start: 20150401, end: 20151002
  5. CANNABINIODS [Suspect]
     Active Substance: UNSPECIFIED INGREDIENT
     Indication: PRODUCT USED FOR UNKNOWN INDICATION
     Dosage: UNK
     Route: 064
     Dates: end: 201509
  6. NICOTINE. [Suspect]
     Active Substance: NICOTINE
     Indication: SMOKING CESSATION THERAPY
     Dosage: 10 MG PER CARTRIDGE, UNIT WAS 4 MG DELIVERED, FREQUENCY WAS 1-4 CATRIDGES DAILY
     Route: 064
     Dates: start: 20150616, end: 20150715
  7. FLUTICASONE [Suspect]
     Active Substance: FLUTICASONE\FLUTICASONE PROPIONATE
     Indication: ASTHMA
     Dosage: UNK
     Route: 064
     Dates: start: 20150304, end: 20151002

REACTIONS (4)
  - Drug withdrawal syndrome neonatal [Recovered/Resolved]
  - Foetal exposure during pregnancy [Recovered/Resolved]
  - Maternal drugs affecting foetus [None]
  - Blood bilirubin increased [Unknown]

NARRATIVE: CASE EVENT DATE: 201504
